FAERS Safety Report 8885804 (Version 1)
Quarter: 2012Q4

REPORT INFORMATION
  Report Type: 
  Country: GB (occurrence: GB)
  Receive Date: 20121102
  Receipt Date: 20121102
  Transmission Date: 20130627
  Serious: Yes (Other)
  Sender: FDA-Public Use
  Company Number: GB-PFIZER INC-2012271483

PATIENT
  Age: 80 Year
  Sex: Male

DRUGS (2)
  1. NEURONTIN [Suspect]
     Indication: PERIPHERAL NEUROPATHY NOS
     Dosage: UNK
  2. LYRICA [Suspect]
     Dosage: UNK

REACTIONS (1)
  - Breast disorder male [Unknown]
